FAERS Safety Report 5299486-2 (Version None)
Quarter: 2007Q2

REPORT INFORMATION
  Report Type: 
  Country: None (occurrence: None)
  Receive Date: 20070417
  Receipt Date: 20070413
  Transmission Date: 20071010
  Serious: Yes (Hospitalization)
  Sender: FDA-Public Use
  Company Number: HU-SANOFI-SYNTHELABO-D01200702436

PATIENT
  Sex: Female
  Weight: 48 kg

DRUGS (4)
  1. FLUOROURACIL [Suspect]
     Dosage: 400 MG/M?, IV BOLUS D1+D2 FOLLOWED BY 5-FU 2400 MG/M? OVER 46-HOUR CONTINUOUS INFUSION.
     Route: 042
     Dates: start: 20061108, end: 20061110
  2. OXALIPLATIN [Suspect]
     Route: 042
     Dates: start: 20061108, end: 20061108
  3. SR57746 OR PLACEBO [Suspect]
     Route: 048
     Dates: start: 20060927, end: 20061122
  4. LEUCOVORIN CALCIUM [Suspect]
     Route: 042
     Dates: start: 20061108, end: 20061108

REACTIONS (2)
  - HYPONATRAEMIA [None]
  - PANCYTOPENIA [None]
